FAERS Safety Report 6098688-5 (Version None)
Quarter: 2009Q1

REPORT INFORMATION
  Report Type: 
  Country: None (occurrence: None)
  Receive Date: 20090302
  Receipt Date: 20090223
  Transmission Date: 20090719
  Serious: Yes (Hospitalization)
  Sender: FDA-Public Use
  Company Number: FR-ASTRAZENECA-2009CG00430

PATIENT
  Age: 32109 Day
  Sex: Female

DRUGS (9)
  1. ZESTRIL [Suspect]
     Indication: HYPERTENSION
     Route: 048
     Dates: end: 20090108
  2. LASIX [Interacting]
     Route: 048
     Dates: end: 20090108
  3. PREVISCAN [Concomitant]
     Route: 048
  4. DIFFU K [Concomitant]
     Route: 048
  5. ZYLORIC [Concomitant]
     Indication: GOUT
     Route: 048
     Dates: start: 20081218, end: 20090108
  6. ELISOR [Concomitant]
     Route: 048
     Dates: end: 20090108
  7. AMARYL [Concomitant]
     Indication: TYPE 2 DIABETES MELLITUS
     Route: 048
     Dates: end: 20090108
  8. CORDARONE [Concomitant]
     Route: 048
  9. COLCHIMAX [Concomitant]
     Indication: GOUT
     Route: 048
     Dates: start: 20081218, end: 20090108

REACTIONS (2)
  - DRUG INTERACTION [None]
  - RENAL FAILURE ACUTE [None]
